FAERS Safety Report 9780959 (Version 1)
Quarter: 2013Q4

REPORT INFORMATION
  Report Type: Spontaneous
  Country: FR (occurrence: None)
  Receive Date: 20131220
  Receipt Date: 20131220
  Transmission Date: 20140711
  Serious: Yes (Death)
  Sender: FDA-Public Use
  Company Number: 1976331

PATIENT
  Age: 65 Year
  Sex: Female

DRUGS (3)
  1. CARBOPLATIN [Suspect]
     Indication: CERVIX CARCINOMA
     Dosage: NOT OTHERWISE SPECIFIED
     Route: 042
     Dates: start: 20100922, end: 20101103
  2. ZOPHREN [Suspect]
     Indication: NAUSEA
     Route: 048
     Dates: start: 20100922
  3. EMEND [Concomitant]

REACTIONS (2)
  - Thrombocytopenia [None]
  - Thrombotic microangiopathy [None]
